FAERS Safety Report 7133081-5 (Version None)
Quarter: 2010Q4

REPORT INFORMATION
  Report Type: 
  Country: None (occurrence: None)
  Receive Date: 20101202
  Receipt Date: 20101122
  Transmission Date: 20110411
  Serious: Yes (Hospitalization)
  Sender: FDA-Public Use
  Company Number: B0685527A

PATIENT
  Sex: Female

DRUGS (16)
  1. ZOPHREN [Suspect]
     Indication: BREAST CANCER
     Dosage: 8MG CYCLIC
     Route: 042
     Dates: start: 20100101, end: 20100101
  2. TAXOTERE [Suspect]
     Indication: BREAST CANCER
     Dosage: 178MG CYCLIC
     Route: 042
     Dates: start: 20100101, end: 20100101
  3. ENDOXAN [Suspect]
     Indication: BREAST CANCER
     Dosage: 920MG CYCLIC
     Route: 042
     Dates: start: 20100101, end: 20100101
  4. FARMORUBICINE [Suspect]
     Indication: BREAST NEOPLASM
     Dosage: 184MG CYCLIC
     Route: 042
     Dates: start: 20100101, end: 20100101
  5. FLUOROURACIL [Suspect]
     Indication: BREAST NEOPLASM
     Dosage: 920MG CYCLIC
     Route: 042
     Dates: start: 20100101, end: 20100101
  6. ALPRAZOLAM [Concomitant]
     Indication: PRODUCT USED FOR UNKNOWN INDICATION
     Route: 065
  7. ALLOPURINOL [Concomitant]
     Indication: PRODUCT USED FOR UNKNOWN INDICATION
     Route: 065
  8. COLCHIMAX [Concomitant]
     Indication: PRODUCT USED FOR UNKNOWN INDICATION
     Route: 065
  9. DEROXAT [Concomitant]
     Indication: PRODUCT USED FOR UNKNOWN INDICATION
     Route: 065
  10. LEVOTHYROXINE SODIUM [Concomitant]
     Indication: PRODUCT USED FOR UNKNOWN INDICATION
     Route: 065
  11. INIPOMP [Concomitant]
     Indication: PRODUCT USED FOR UNKNOWN INDICATION
     Route: 065
  12. ALDACTONE [Concomitant]
     Indication: PRODUCT USED FOR UNKNOWN INDICATION
     Route: 065
  13. FUROSEMIDE [Concomitant]
     Route: 065
  14. SIMVASTATIN [Concomitant]
     Route: 065
  15. NOCTAMIDE [Concomitant]
     Route: 065
  16. DUPHALAC [Concomitant]
     Route: 065

REACTIONS (4)
  - ALOPECIA TOTALIS [None]
  - MADAROSIS [None]
  - SKIN DISORDER [None]
  - TOXIC SKIN ERUPTION [None]
